FAERS Safety Report 6209653-9 (Version None)
Quarter: 2009Q2

REPORT INFORMATION
  Report Type: 
  Country: None (occurrence: None)
  Receive Date: 20090601
  Receipt Date: 20080220
  Transmission Date: 20091009
  Serious: Yes (Hospitalization)
  Sender: FDA-Public Use
  Company Number: US-ASTRAZENECA-2008UW01399

PATIENT
  Age: 510 Month
  Sex: Female
  Weight: 93 kg

DRUGS (7)
  1. SEROQUEL [Suspect]
     Indication: BIPOLAR DISORDER
     Dosage: VARIOUS INCLUDING BUT NOT LIMITED TO 200 MG
     Route: 048
     Dates: start: 20051101, end: 20060501
  2. SEROQUEL [Suspect]
     Dosage: 100 MG - 650 MG
     Route: 048
     Dates: start: 20060928, end: 20061004
  3. SEROQUEL [Suspect]
     Dosage: 150 MG IN THE MORNING, 150 MG AFTERNOON, 300 MG AT NIGHT
     Route: 048
     Dates: start: 20061011
  4. SEROQUEL [Suspect]
     Dosage: 200 MG IN THE MORNING, 200 MG AT NIGHT
     Route: 048
     Dates: start: 20070205
  5. ABILIFY [Concomitant]
     Dates: start: 20061001
  6. RISPERDAL [Concomitant]
     Dates: start: 20050101
  7. ZYPREXA [Concomitant]
     Dates: start: 20050101

REACTIONS (5)
  - BIPOLAR DISORDER [None]
  - BLOOD CHOLESTEROL INCREASED [None]
  - DIABETES MELLITUS [None]
  - POST-TRAUMATIC STRESS DISORDER [None]
  - SUICIDE ATTEMPT [None]
